FAERS Safety Report 5800694-X (Version None)
Quarter: 2008Q3

REPORT INFORMATION
  Report Type: 
  Country: None (occurrence: None)
  Receive Date: 20080703
  Receipt Date: 20080623
  Transmission Date: 20090109
  Serious: Yes (Hospitalization, Other)
  Sender: FDA-Public Use
  Company Number: IE-ABBOTT-08P-229-0459340-00

PATIENT
  Sex: Female

DRUGS (4)
  1. HUMIRA [Suspect]
     Indication: CROHN'S DISEASE
     Route: 058
     Dates: start: 20080403
  2. PREDNISONE 50MG TAB [Concomitant]
     Indication: CROHN'S DISEASE
     Dates: start: 20070301
  3. AZATHIOPRINE [Concomitant]
     Indication: CROHN'S DISEASE
  4. MESALAMINE [Concomitant]
     Indication: CROHN'S DISEASE

REACTIONS (4)
  - ABDOMINAL PAIN UPPER [None]
  - CHEST PAIN [None]
  - JAUNDICE [None]
  - PRURITUS GENERALISED [None]
